FAERS Safety Report 14621021 (Version 2)
Quarter: 2024Q3

REPORT INFORMATION
  Report Type: Report from Study
  Country: US (occurrence: US)
  Receive Date: 20180309
  Receipt Date: 20240730
  Transmission Date: 20241017
  Serious: Yes (Other)
  Sender: TAKEDA
  Company Number: US-TAKEDA-2018TUS005204

PATIENT
  Sex: Female
  Weight: 80.726 kg

DRUGS (1)
  1. VEDOLIZUMAB [Suspect]
     Active Substance: VEDOLIZUMAB
     Indication: Crohn^s disease
     Dosage: UNK
     Route: 042
     Dates: start: 20150412

REACTIONS (3)
  - Crohn^s disease [Not Recovered/Not Resolved]
  - Vein disorder [Unknown]
  - Product dose omission issue [Unknown]
